APPROVED DRUG PRODUCT: DEXMEDETOMIDINE HYDROCHLORIDE
Active Ingredient: DEXMEDETOMIDINE HYDROCHLORIDE
Strength: EQ 200MCG BASE/50ML (EQ 4MCG BASE/ML)
Dosage Form/Route: INJECTABLE;INJECTION
Application: A209065 | Product #003 | TE Code: AP
Applicant: JIANGSU HENGRUI PHARMACEUTICALS CO LTD
Approved: Jun 12, 2020 | RLD: No | RS: No | Type: RX